FAERS Safety Report 7954422-2 (Version None)
Quarter: 2011Q4

REPORT INFORMATION
  Report Type: 
  Country: None (occurrence: None)
  Receive Date: 20111202
  Receipt Date: 20111128
  Transmission Date: 20120403
  Serious: Yes (Other)
  Sender: FDA-Public Use
  Company Number: US-GLAXOSMITHKLINE-A0956236A

PATIENT
  Age: 53 Year
  Sex: Female

DRUGS (2)
  1. ADVAIR DISKUS 100/50 [Suspect]
     Route: 065
     Dates: start: 20091211
  2. FLONASE [Suspect]
     Dosage: 50MCG UNKNOWN
     Route: 065
     Dates: start: 20091211

REACTIONS (2)
  - PNEUMONIA [None]
  - SINUSITIS [None]
